FAERS Safety Report 8211497-3 (Version None)
Quarter: 2012Q1

REPORT INFORMATION
  Report Type: 
  Country: None (occurrence: None)
  Receive Date: 20120315
  Receipt Date: 20120312
  Transmission Date: 20120608
  Serious: Yes (Death)
  Sender: FDA-Public Use
  Company Number: EG-PFIZER INC-2012064083

PATIENT
  Age: 52 Year
  Sex: Male

DRUGS (4)
  1. RAPAMUNE [Suspect]
     Indication: IMMUNOSUPPRESSION
     Dosage: UNK
     Route: 048
     Dates: start: 20120226
  2. IMIPENEM AND CILASTATIN SODIUM [Concomitant]
     Indication: LOWER RESPIRATORY TRACT INFECTION
     Dosage: UNK
     Dates: start: 20120210, end: 20120224
  3. VFEND [Suspect]
     Indication: ASPERGILLOSIS
     Dosage: 200 MG, 2X/DAY
     Route: 048
     Dates: start: 20120226
  4. ZYVOX [Concomitant]
     Indication: LOWER RESPIRATORY TRACT INFECTION
     Dosage: 600 MG, 2X/DAY
     Route: 042
     Dates: start: 20120210, end: 20120224

REACTIONS (1)
  - SUDDEN CARDIAC DEATH [None]
